FAERS Safety Report 26071629 (Version 1)
Quarter: 2025Q4

REPORT INFORMATION
  Report Type: Spontaneous
  Country: US (occurrence: US)
  Receive Date: 20251120
  Receipt Date: 20251120
  Transmission Date: 20260118
  Serious: Yes (Other)
  Sender: NOVO NORDISK
  Company Number: US-NOVOPROD-1564006

PATIENT
  Age: 86 Year
  Sex: Female

DRUGS (2)
  1. OZEMPIC [Suspect]
     Active Substance: SEMAGLUTIDE
     Indication: Peripheral swelling
  2. OZEMPIC [Suspect]
     Active Substance: SEMAGLUTIDE
     Indication: Type 2 diabetes mellitus
     Dosage: 1 MG, QW

REACTIONS (11)
  - Incoherent [Unknown]
  - Blood pressure decreased [Unknown]
  - Asthenia [Unknown]
  - Heart rate decreased [Unknown]
  - Diarrhoea [Unknown]
  - Vomiting [Unknown]
  - Blood glucose decreased [Unknown]
  - Illness [Unknown]
  - Drug intolerance [Unknown]
  - Extra dose administered [Unknown]
  - Wrong technique in product usage process [Unknown]

NARRATIVE: CASE EVENT DATE: 20251103
